FAERS Safety Report 6526724-8 (Version None)
Quarter: 2010Q1

REPORT INFORMATION
  Report Type: 
  Country: None (occurrence: None)
  Receive Date: 20100105
  Receipt Date: 20090916
  Transmission Date: 20100710
  Serious: Yes (Death, Other)
  Sender: FDA-Public Use
  Company Number: DE-SANOFI-AVENTIS-200912055DE

PATIENT
  Age: 79 Year
  Sex: Male

DRUGS (13)
  1. DOCETAXEL [Suspect]
     Route: 042
     Dates: start: 20090526, end: 20090728
  2. DEXAMETHASONE [Concomitant]
     Indication: PROPHYLAXIS
     Route: 048
     Dates: start: 20090526, end: 20090728
  3. NAVOBAN [Concomitant]
     Indication: PROPHYLAXIS
     Route: 042
     Dates: start: 20090526, end: 20090728
  4. ALLOPURINOL [Concomitant]
     Indication: DRUG USE FOR UNKNOWN INDICATION
  5. ENALAPRIL MALEATE [Concomitant]
     Indication: DRUG USE FOR UNKNOWN INDICATION
  6. ASPIRIN [Concomitant]
     Indication: DRUG USE FOR UNKNOWN INDICATION
  7. MONTELUKAST SODIUM [Concomitant]
     Indication: DRUG USE FOR UNKNOWN INDICATION
  8. SIMVABETA [Concomitant]
     Indication: DRUG USE FOR UNKNOWN INDICATION
  9. DILTIAZEM [Concomitant]
     Indication: DRUG USE FOR UNKNOWN INDICATION
  10. TILIDIN ^RATIOPHARM^ [Concomitant]
     Indication: DRUG USE FOR UNKNOWN INDICATION
  11. XALATAN [Concomitant]
  12. AZOPT [Concomitant]
  13. BICALUTAMIDE [Concomitant]
     Indication: DRUG USE FOR UNKNOWN INDICATION

REACTIONS (5)
  - FATIGUE [None]
  - GENERAL PHYSICAL HEALTH DETERIORATION [None]
  - HAEMOGLOBIN DECREASED [None]
  - NAUSEA [None]
  - VOMITING [None]
